FAERS Safety Report 5072866-6 (Version None)
Quarter: 2006Q3

REPORT INFORMATION
  Report Type: 
  Country: None (occurrence: None)
  Receive Date: 20060802
  Receipt Date: 20060404
  Transmission Date: 20061208
  Serious: Yes (Other)
  Sender: FDA-Public Use
  Company Number: OMPQ-NO-0604L-0216

PATIENT
  Age: 3 Month
  Sex: Male

DRUGS (2)
  1. OMNIPAQUE 140 [Suspect]
     Indication: URETHRAL VALVES
     Dosage: URINARY TRACT
     Route: 066
  2. POVIDONE IODINE [Concomitant]

REACTIONS (2)
  - HYPOTHYROIDISM [None]
  - IODINE UPTAKE INCREASED [None]
